FAERS Safety Report 7934417-5 (Version None)
Quarter: 2011Q4

REPORT INFORMATION
  Report Type: 
  Country: None (occurrence: None)
  Receive Date: 20111122
  Receipt Date: 20111114
  Transmission Date: 20120403
  Serious: Yes (Hospitalization)
  Sender: FDA-Public Use
  Company Number: US-GLAXOSMITHKLINE-A0953043A

PATIENT
  Age: 56 Year
  Sex: Male

DRUGS (5)
  1. SLEEPING MEDICATION [Concomitant]
  2. AVANDIA [Suspect]
     Indication: PRODUCT USED FOR UNKNOWN INDICATION
     Dosage: 4MG PER DAY
     Route: 048
     Dates: start: 20070101
  3. UNKNOWN [Concomitant]
  4. LORTAB [Concomitant]
  5. WEIGHT LOSS MEDICATION [Concomitant]

REACTIONS (2)
  - RESUSCITATION [None]
  - AMNESIA [None]
